FAERS Safety Report 8540979-X (Version None)
Quarter: 2012Q3

REPORT INFORMATION
  Report Type: 
  Country: None (occurrence: None)
  Receive Date: 20120726
  Receipt Date: 20110808
  Transmission Date: 20120928
  Serious: No
  Sender: FDA-Public Use
  Company Number: US-ASTRAZENECA-2011SE47289

PATIENT
  Age: 26 Year
  Sex: Female

DRUGS (2)
  1. ANTI ANXIETY MEDICATION [Concomitant]
  2. SEROQUEL XR [Suspect]
     Indication: BIPOLAR DISORDER
     Route: 048
     Dates: end: 20110801

REACTIONS (6)
  - DEPRESSION [None]
  - HYPERHIDROSIS [None]
  - COLD SWEAT [None]
  - DRUG DOSE OMISSION [None]
  - CRYING [None]
  - INSOMNIA [None]
